FAERS Safety Report 14764909 (Version 2)
Quarter: 2018Q3

REPORT INFORMATION
  Report Type: Report from Study
  Country: GB (occurrence: GB)
  Receive Date: 20180416
  Receipt Date: 20180729
  Transmission Date: 20181010
  Serious: Yes (Death, Hospitalization, Other)
  Sender: FDA-Public Use
  Company Number: GB-B.I. PHARMACEUTICALS,INC./RIDGEFIELD-2017-BI-036952

PATIENT
  Age: 76 Year
  Sex: Male
  Weight: 68.2 kg

DRUGS (4)
  1. DOCETAXEL. [Suspect]
     Active Substance: DOCETAXEL
     Indication: NON-SMALL CELL LUNG CANCER
     Dosage: UNIT DOSE AND DAILY DOSE: 75UG/M^2
     Route: 042
     Dates: start: 20170614, end: 20170614
  2. VARGATEF [Suspect]
     Active Substance: NINTEDANIB
     Route: 048
     Dates: start: 20170714, end: 20170724
  3. DOCETAXEL. [Suspect]
     Active Substance: DOCETAXEL
     Dosage: UNIT DOSE AND DAILY DOSE: 60UG/M^2
     Route: 042
     Dates: start: 20170713, end: 20170713
  4. VARGATEF [Suspect]
     Active Substance: NINTEDANIB
     Indication: NON-SMALL CELL LUNG CANCER
     Route: 048
     Dates: start: 20170615, end: 20170704

REACTIONS (6)
  - Fatigue [Recovered/Resolved]
  - Malignant neoplasm progression [Fatal]
  - Febrile neutropenia [Recovered/Resolved]
  - Decreased appetite [Recovered/Resolved]
  - Fatigue [Recovered/Resolved]
  - Nausea [Recovered/Resolved]

NARRATIVE: CASE EVENT DATE: 20170621
